FAERS Safety Report 5939447-0 (Version None)
Quarter: 2008Q4

REPORT INFORMATION
  Report Type: 
  Country: None (occurrence: None)
  Receive Date: 20081029
  Receipt Date: 20081015
  Transmission Date: 20090506
  Serious: Yes (Hospitalization)
  Sender: FDA-Public Use
  Company Number: DSA_32530_2008

PATIENT
  Sex: Female

DRUGS (3)
  1. LORAZEPAM [Suspect]
     Indication: DRUG USE FOR UNKNOWN INDICATION
     Dosage: 1 MG QD ORAL
     Route: 048
     Dates: start: 20081014
  2. EUNERPAN (EUNERPAN LIQUIDUM - MELPERONE HYDROCHLORIDE) (NOT SPECIFIED) [Suspect]
     Indication: DRUG USE FOR UNKNOWN INDICATION
     Dosage: 50 MG QD ORAL
     Route: 048
  3. HYDROMORPHONE HYDROCHLORIDE [Suspect]
     Indication: DRUG USE FOR UNKNOWN INDICATION
     Dosage: 16 MG QD ORAL
     Route: 048

REACTIONS (3)
  - MIOSIS [None]
  - RESPIRATORY RATE DECREASED [None]
  - SOPOR [None]
